FAERS Safety Report 24305562 (Version 2)
Quarter: 2024Q4

REPORT INFORMATION
  Report Type: Report from Study
  Country: IN (occurrence: IN)
  Receive Date: 20240911
  Receipt Date: 20241021
  Transmission Date: 20250114
  Serious: Yes (Hospitalization)
  Sender: ROCHE
  Company Number: IN-ROCHE-10000077022

PATIENT
  Age: 70 Year
  Sex: Male
  Weight: 60 kg

DRUGS (1)
  1. HEMLIBRA [Suspect]
     Active Substance: EMICIZUMAB-KXWH
     Indication: Factor VIII deficiency
     Dosage: ONGOING- NO
     Route: 058

REACTIONS (2)
  - Drug ineffective [Unknown]
  - Haemorrhage [Recovered/Resolved]
